FAERS Safety Report 5063710-1 (Version None)
Quarter: 2006Q3

REPORT INFORMATION
  Report Type: 
  Country: None (occurrence: None)
  Receive Date: 20060727
  Receipt Date: 20060718
  Transmission Date: 20061208
  Serious: Yes (Hospitalization)
  Sender: FDA-Public Use
  Company Number: JP-BRISTOL-MYERS SQUIBB COMPANY-13454590

PATIENT
  Age: 32 Year
  Sex: Male

DRUGS (3)
  1. EFAVIRENZ [Suspect]
     Indication: HIV INFECTION
     Route: 048
     Dates: start: 20060117, end: 20060128
  2. TRUVADA [Concomitant]
     Dates: start: 20060117
  3. RETROVIR [Concomitant]
     Dates: start: 20060117

REACTIONS (1)
  - TOXIC SKIN ERUPTION [None]
